FAERS Safety Report 6380766-4 (Version None)
Quarter: 2009Q3

REPORT INFORMATION
  Report Type: 
  Country: None (occurrence: None)
  Receive Date: 20090929
  Receipt Date: 20090916
  Transmission Date: 20100115
  Serious: Yes (Other)
  Sender: FDA-Public Use
  Company Number: CA-GENENTECH-290742

PATIENT

DRUGS (1)
  1. AVASTIN [Suspect]
     Indication: EYE DISORDER
     Route: 031

REACTIONS (1)
  - BLINDNESS [None]
